FAERS Safety Report 7380430-9 (Version None)
Quarter: 2011Q1

REPORT INFORMATION
  Report Type: 
  Country: None (occurrence: None)
  Receive Date: 20110329
  Receipt Date: 20110304
  Transmission Date: 20110831
  Serious: Yes (Hospitalization)
  Sender: FDA-Public Use
  Company Number: US-EISAI INC-E7389-01132-CLI-US

PATIENT
  Sex: Male
  Weight: 101 kg

DRUGS (8)
  1. PERI-COLACE [Concomitant]
     Route: 048
  2. SIMVASTATIN [Concomitant]
     Route: 065
  3. VICODIN [Concomitant]
     Indication: PAIN
     Route: 048
  4. MORPHINE SULFATE [Concomitant]
     Route: 048
  5. E7389 (BOLD) [Suspect]
     Indication: NON-SMALL CELL LUNG CANCER
     Route: 041
     Dates: start: 20101011, end: 20110111
  6. ERLOTINIB [Concomitant]
     Indication: NON-SMALL CELL LUNG CANCER
     Route: 048
     Dates: start: 20101026, end: 20110103
  7. MS CONTIN [Concomitant]
     Route: 048
  8. SALBUTEROL NEBULIZER [Concomitant]
     Route: 055

REACTIONS (2)
  - NEOPLASM MALIGNANT [None]
  - PULMONARY EMBOLISM [None]
